FAERS Safety Report 10193036 (Version 3)
Quarter: 2014Q3

REPORT INFORMATION
  Report Type: Spontaneous
  Country: US (occurrence: US)
  Receive Date: 20140524
  Receipt Date: 20140718
  Transmission Date: 20150326
  Serious: Yes (Other)
  Sender: FDA-Public Use
  Company Number: US-AMGEN-USASP2014037167

PATIENT
  Age: 66 Year
  Sex: Female
  Weight: 70.3 kg

DRUGS (10)
  1. MULTIVITAMINS [Concomitant]
     Active Substance: VITAMINS
  2. VITAMIN D                          /00107901/ [Concomitant]
     Active Substance: ERGOCALCIFEROL
  3. MAGNESIUM [Concomitant]
     Active Substance: MAGNESIUM
  4. PREMPRO [Concomitant]
     Active Substance: ESTROGENS, CONJUGATED\MEDROXYPROGESTERONE ACETATE
     Route: 048
  5. OMEGA 3                            /01333901/ [Concomitant]
  6. FOSAMAX [Concomitant]
     Active Substance: ALENDRONATE SODIUM
  7. LEVOTHYROXINE [Concomitant]
     Active Substance: LEVOTHYROXINE
     Route: 048
  8. PROLIA [Suspect]
     Active Substance: DENOSUMAB
     Indication: OSTEOPOROSIS POSTMENOPAUSAL
     Dosage: 60 MG, Q6MO
     Route: 058
     Dates: start: 20120514, end: 20140514
  9. HYDROCHLOROTHIAZIDE. [Concomitant]
     Active Substance: HYDROCHLOROTHIAZIDE
     Indication: MENIERE^S DISEASE
     Dosage: 25 MG, QD
  10. ADVIL (MEFENAMIC ACID) [Concomitant]
     Active Substance: MEFENAMIC ACID
     Indication: ARTHRITIS

REACTIONS (30)
  - Sjogren^s syndrome [Not Recovered/Not Resolved]
  - Dizziness [Not Recovered/Not Resolved]
  - Migraine [Not Recovered/Not Resolved]
  - Fungal infection [Unknown]
  - Scar [Unknown]
  - Gastric disorder [Unknown]
  - Pain in jaw [Unknown]
  - Claustrophobia [Unknown]
  - Lymphadenopathy [Unknown]
  - Immunodeficiency [Unknown]
  - Activities of daily living impaired [Unknown]
  - Neck pain [Not Recovered/Not Resolved]
  - Headache [Not Recovered/Not Resolved]
  - Ulcer [Unknown]
  - Photosensitivity reaction [Unknown]
  - Stress [Unknown]
  - Malaise [Unknown]
  - Diarrhoea [Unknown]
  - Trismus [Unknown]
  - Hip fracture [Unknown]
  - Systemic lupus erythematosus [Unknown]
  - Vertigo [Not Recovered/Not Resolved]
  - Meniere^s disease [Not Recovered/Not Resolved]
  - Depression [Unknown]
  - Back pain [Not Recovered/Not Resolved]
  - Butterfly rash [Unknown]
  - Hypersensitivity [Unknown]
  - Inflammation [Unknown]
  - Vision blurred [Unknown]
  - Rash [Not Recovered/Not Resolved]

NARRATIVE: CASE EVENT DATE: 2013
